FAERS Safety Report 15523554 (Version 1)
Quarter: 2018Q4

REPORT INFORMATION
  Report Type: Spontaneous
  Country: US (occurrence: US)
  Receive Date: 20181018
  Receipt Date: 20181018
  Transmission Date: 20190205
  Serious: No
  Sender: FDA-Public Use
  Company Number: US-HIKMA PHARMACEUTICALS USA INC.-US-H14001-18-07268

PATIENT
  Age: 18 Year
  Sex: Male

DRUGS (2)
  1. TESTOSTERONE ENANTHATE. [Suspect]
     Active Substance: TESTOSTERONE ENANTHATE
     Indication: GROWTH RETARDATION
     Route: 030
     Dates: end: 20180726
  2. TESTOSTERONE ENANTHATE. [Suspect]
     Active Substance: TESTOSTERONE ENANTHATE
     Indication: BONE DEVELOPMENT ABNORMAL
     Route: 030
     Dates: start: 20180726

REACTIONS (1)
  - Incorrect product administration duration [Unknown]
